FAERS Safety Report 7221061-0 (Version None)
Quarter: 2011Q1

REPORT INFORMATION
  Report Type: 
  Country: None (occurrence: None)
  Receive Date: 20110112
  Receipt Date: 20110103
  Transmission Date: 20110831
  Serious: No
  Sender: FDA-Public Use
  Company Number: US-PFIZER INC-2010164770

PATIENT
  Sex: Male
  Weight: 146.94 kg

DRUGS (1)
  1. RELISTOR [Suspect]
     Indication: PROPHYLAXIS
     Dosage: 12 MG, UNK
     Route: 042
     Dates: start: 20101106, end: 20101106

REACTIONS (2)
  - INCORRECT ROUTE OF DRUG ADMINISTRATION [None]
  - TREMOR [None]
